FAERS Safety Report 21485620 (Version 2)
Quarter: 2022Q4

REPORT INFORMATION
  Report Type: Spontaneous
  Country: US (occurrence: US)
  Receive Date: 20221020
  Receipt Date: 20221025
  Transmission Date: 20230113
  Serious: No
  Sender: FDA-Public Use
  Company Number: US-BIOGEN-2022BI01162962

PATIENT
  Sex: Female

DRUGS (6)
  1. TECFIDERA [Suspect]
     Active Substance: DIMETHYL FUMARATE
     Indication: Multiple sclerosis
     Dosage: TAKE 1 CAPSULE BY MOUTH TWICE DAILY
     Route: 050
     Dates: start: 20181116, end: 2022
  2. AMOXICILLIN [Concomitant]
     Active Substance: AMOXICILLIN
     Route: 050
  3. AUBAGIO [Concomitant]
     Active Substance: TERIFLUNOMIDE
     Route: 050
  4. CROMOLYN SODIUM [Concomitant]
     Active Substance: CROMOLYN SODIUM
     Dosage: SOLUTION 4% OP
     Route: 050
  5. PHENTERMINE [Concomitant]
     Active Substance: PHENTERMINE
     Route: 050
  6. TYLENOL [Concomitant]
     Active Substance: ACETAMINOPHEN
     Route: 050

REACTIONS (2)
  - Multiple sclerosis relapse [Unknown]
  - Nausea [Unknown]
